FAERS Safety Report 23687416 (Version 1)
Quarter: 2024Q1

REPORT INFORMATION
  Report Type: Spontaneous
  Country: GB (occurrence: GB)
  Receive Date: 20240329
  Receipt Date: 20240329
  Transmission Date: 20240410
  Serious: Yes (Life-Threatening, Hospitalization, Other)
  Sender: FDA-Public Use
  Company Number: GB-MLMSERVICE-20240322-4906977-1

PATIENT
  Age: 57 Year
  Sex: Female

DRUGS (1)
  1. ALENDRONATE SODIUM [Suspect]
     Active Substance: ALENDRONATE SODIUM
     Indication: Osteoporosis
     Dosage: UNK UNK, QM
     Route: 048

REACTIONS (4)
  - Osteonecrosis [Unknown]
  - Facial paralysis [Not Recovered/Not Resolved]
  - Osteonecrosis of jaw [Unknown]
  - Otitis externa [Unknown]
